FAERS Safety Report 4987170-1 (Version None)
Quarter: 2006Q2

REPORT INFORMATION
  Report Type: 
  Country: None (occurrence: None)
  Receive Date: 20060501
  Receipt Date: 20050811
  Transmission Date: 20061013
  Serious: Yes (Other)
  Sender: FDA-Public Use
  Company Number: US-ROCHE-414259

PATIENT
  Sex: Male
  Weight: 2.8 kg

DRUGS (3)
  1. ACCUTANE [Suspect]
     Dates: start: 19991206, end: 20000615
  2. MINOCYCLINE HCL [Concomitant]
     Dates: start: 19991206
  3. ORTHO TRI-CYCLEN [Concomitant]

REACTIONS (4)
  - ABORTION THREATENED [None]
  - CAESAREAN SECTION [None]
  - DRUG EXPOSURE DURING PREGNANCY [None]
  - SICK RELATIVE [None]
